FAERS Safety Report 8449386 (Version 2)
Quarter: 2013Q1

REPORT INFORMATION
  Report Type: Spontaneous
  Country: AU (occurrence: AU)
  Receive Date: 20120308
  Receipt Date: 20130319
  Transmission Date: 20140127
  Serious: Yes (Death, Other)
  Sender: FDA-Public Use
  Company Number: AU-ROCHE-1044446

PATIENT
  Age: 48 Year
  Sex: Female
  Weight: 72 kg

DRUGS (4)
  1. MABTHERA [Suspect]
     Indication: RHEUMATOID ARTHRITIS
     Route: 042
     Dates: start: 20110112, end: 20110127
  2. MABTHERA [Suspect]
     Route: 065
     Dates: start: 20110725, end: 20110808
  3. HYDROXYCHLOROQUINE [Concomitant]
     Indication: RHEUMATOID ARTHRITIS
     Route: 048
     Dates: start: 200804
  4. METHOTREXATE [Concomitant]
     Route: 048
     Dates: start: 200305

REACTIONS (5)
  - Diabetes insipidus [Unknown]
  - Breast cancer [Unknown]
  - Confusional state [Unknown]
  - Neoplasm [Fatal]
  - Febrile neutropenia [Unknown]
